FAERS Safety Report 7137735 (Version 2)
Quarter: 2013Q1

REPORT INFORMATION
  Report Type: Spontaneous
  Country: US (occurrence: US)
  Receive Date: 20091002
  Receipt Date: 20130329
  Transmission Date: 20140127
  Serious: No
  Sender: FDA-Public Use
  Company Number: US-ASTRAZENECA-2009UW02127

PATIENT
  Age: 65 Year
  Sex: Female
  Weight: 61.2 kg

DRUGS (3)
  1. ARIMIDEX [Suspect]
     Indication: BREAST CANCER
     Route: 048
     Dates: start: 200805
  2. MELOXICAM [Concomitant]
  3. VIT D [Concomitant]
     Dosage: 900 IU DAILY

REACTIONS (4)
  - Vitamin D decreased [Unknown]
  - Headache [Not Recovered/Not Resolved]
  - Arthritis [Not Recovered/Not Resolved]
  - Bone density decreased [Unknown]
